FAERS Safety Report 6248615-2 (Version None)
Quarter: 2009Q2

REPORT INFORMATION
  Report Type: 
  Country: None (occurrence: None)
  Receive Date: 20090629
  Receipt Date: 20071008
  Transmission Date: 20091009
  Serious: Yes (Other)
  Sender: FDA-Public Use
  Company Number: US-ASTRAZENECA-2007UW05685

PATIENT
  Age: 785 Month
  Sex: Female
  Weight: 79.8 kg

DRUGS (29)
  1. SEROQUEL [Suspect]
     Indication: BIPOLAR DISORDER
     Dosage: 25-50 MG
     Route: 048
     Dates: start: 20010330, end: 20010405
  2. SEROQUEL [Suspect]
     Indication: MANIA
     Dosage: 25-50 MG
     Route: 048
     Dates: start: 20010330, end: 20010405
  3. SEROQUEL [Suspect]
     Indication: DEPRESSION
     Dosage: 25-50 MG
     Route: 048
     Dates: start: 20010330, end: 20010405
  4. SEROQUEL [Suspect]
     Route: 048
  5. SEROQUEL [Suspect]
     Route: 048
  6. SEROQUEL [Suspect]
     Route: 048
  7. SEROQUEL [Suspect]
     Dosage: 50-100 MG
     Route: 048
     Dates: start: 20010412, end: 20010418
  8. SEROQUEL [Suspect]
     Dosage: 50-100 MG
     Route: 048
     Dates: start: 20010412, end: 20010418
  9. SEROQUEL [Suspect]
     Dosage: 50-100 MG
     Route: 048
     Dates: start: 20010412, end: 20010418
  10. SEROQUEL [Suspect]
     Dosage: 10-500 MG
     Route: 048
     Dates: start: 20011205
  11. SEROQUEL [Suspect]
     Dosage: 10-500 MG
     Route: 048
     Dates: start: 20011205
  12. SEROQUEL [Suspect]
     Dosage: 10-500 MG
     Route: 048
     Dates: start: 20011205
  13. ZYPREXA [Suspect]
     Dates: start: 20010501, end: 20011101
  14. ZOCOR [Concomitant]
     Indication: HYPERCHOLESTEROLAEMIA
     Dosage: 10-40 MG
     Route: 048
     Dates: start: 20020912
  15. ZOCOR [Concomitant]
     Indication: HYPERLIPIDAEMIA
     Dosage: 10-40 MG
     Route: 048
     Dates: start: 20020912
  16. MIRALAX 3350 NF [Concomitant]
     Indication: CONSTIPATION
     Dosage: TAKE 17 GM IN 8 OUNCES OF WATER DAILY
     Dates: start: 20031010
  17. ALLOPURINOL [Concomitant]
     Dosage: 100-300 MG
     Route: 048
     Dates: start: 20000331, end: 20040601
  18. NEURONTIN [Concomitant]
     Dosage: 200-1700 MG
     Route: 048
     Dates: start: 20010330
  19. LITHIUM CARBONATE [Concomitant]
     Route: 048
     Dates: start: 20021108
  20. SYNTHROID [Concomitant]
     Dosage: 0.025-0.075 MG
     Route: 048
     Dates: start: 19961114
  21. GLIPIZIDE [Concomitant]
     Dosage: 5-20 MG
     Route: 048
     Dates: start: 20050420
  22. ACTOS [Concomitant]
     Indication: TYPE 2 DIABETES MELLITUS
     Dosage: 15-30 MG
     Route: 048
     Dates: start: 20050331
  23. CALCIUM [Concomitant]
     Dosage: TWO TIMES A DAY
     Route: 048
     Dates: start: 20010330, end: 20030506
  24. CALCIUM [Concomitant]
     Dosage: DAILY
     Route: 048
     Dates: start: 20030508
  25. INDOCIN [Concomitant]
     Indication: GOUT
     Dosage: 50-150 MG
     Route: 048
     Dates: start: 19980313, end: 20041101
  26. TYLENOL (CAPLET) [Concomitant]
     Dosage: 325 MG EVERY 4-6 HOURS AS NEEDED
     Route: 048
     Dates: start: 20010403
  27. VITAMIN D SUPPLEMENTS [Concomitant]
     Dates: start: 20021009
  28. ATARAX [Concomitant]
     Indication: PRURITUS
     Dosage: 10-75 MG
     Dates: start: 19970902
  29. ATIVAN [Concomitant]
     Indication: ANXIETY
     Dosage: 0.5 MG EVERY 6-8 HOURS
     Dates: start: 20011125

REACTIONS (8)
  - BLOOD GLUCOSE INCREASED [None]
  - DIABETES MELLITUS [None]
  - DIABETIC FOOT [None]
  - DIABETIC GASTROENTEROPATHY [None]
  - DIABETIC NEUROPATHY [None]
  - HYPERGLYCAEMIA [None]
  - PERIPHERAL SENSORY NEUROPATHY [None]
  - TYPE 2 DIABETES MELLITUS [None]
